FAERS Safety Report 11320983 (Version 1)
Quarter: 2015Q3

REPORT INFORMATION
  Report Type: Spontaneous
  Country: US (occurrence: US)
  Receive Date: 20150729
  Receipt Date: 20150729
  Transmission Date: 20151125
  Serious: No
  Sender: FDA-Public Use
  Company Number: US-PFIZER INC-2015246605

PATIENT
  Age: 68 Year
  Sex: Female
  Weight: 94.33 kg

DRUGS (1)
  1. ZIPRASIDONE HCL [Suspect]
     Active Substance: ZIPRASIDONE HYDROCHLORIDE
     Indication: DEPRESSION
     Dosage: UNK

REACTIONS (4)
  - Mental disorder [Unknown]
  - Weight decreased [Unknown]
  - Drug ineffective for unapproved indication [Unknown]
  - Decreased appetite [Unknown]
